FAERS Safety Report 6696226-7 (Version None)
Quarter: 2010Q2

REPORT INFORMATION
  Report Type: 
  Country: None (occurrence: None)
  Receive Date: 20100426
  Receipt Date: 20100413
  Transmission Date: 20101027
  Serious: Yes (Hospitalization)
  Sender: FDA-Public Use
  Company Number: US-JNJFOC-20100404738

PATIENT
  Sex: Male

DRUGS (2)
  1. EXTRA STRENGTH TYLENOL [Suspect]
     Indication: OROPHARYNGEAL PAIN
  2. EXTRA STRENGTH TYLENOL [Suspect]
     Indication: PYREXIA

REACTIONS (5)
  - DIARRHOEA [None]
  - GASTROINTESTINAL ULCER [None]
  - OESOPHAGITIS [None]
  - PRODUCT QUALITY ISSUE [None]
  - VOMITING [None]
